FAERS Safety Report 9668609 (Version 1)
Quarter: 2013Q4

REPORT INFORMATION
  Report Type: Spontaneous
  Country: US (occurrence: US)
  Receive Date: 20131105
  Receipt Date: 20131105
  Transmission Date: 20140711
  Serious: Yes (Hospitalization)
  Sender: FDA-Public Use
  Company Number: US-BRISTOL-MYERS SQUIBB COMPANY-19639814

PATIENT
  Age: 87 Year
  Sex: Female
  Weight: 77.1 kg

DRUGS (2)
  1. ELIQUIS [Suspect]
     Indication: ATRIAL FIBRILLATION
  2. COREG [Concomitant]

REACTIONS (4)
  - Pulmonary oedema [Unknown]
  - Cardiac failure congestive [Unknown]
  - Cough [Unknown]
  - Nasopharyngitis [Unknown]
